FAERS Safety Report 5514601-0 (Version None)
Quarter: 2007Q4

REPORT INFORMATION
  Report Type: 
  Country: None (occurrence: None)
  Receive Date: 20071113
  Receipt Date: 20071103
  Transmission Date: 20080405
  Serious: Yes (Death, Other)
  Sender: FDA-Public Use
  Company Number: CA-ELI_LILLY_AND_COMPANY-CA200711000227

PATIENT
  Sex: Male

DRUGS (2)
  1. XIGRIS [Suspect]
  2. ASPIRIN [Concomitant]

REACTIONS (2)
  - DEATH [None]
  - HAEMORRHAGE [None]
